FAERS Safety Report 23387177 (Version 1)
Quarter: 2024Q1

REPORT INFORMATION
  Report Type: Spontaneous
  Country: US (occurrence: None)
  Receive Date: 20240109
  Receipt Date: 20240109
  Transmission Date: 20240409
  Serious: Yes (Other)
  Sender: FDA-Public Use
  Company Number: None

PATIENT
  Age: 11 Year
  Sex: Female
  Weight: 31.5 kg

DRUGS (3)
  1. MIRALAX [Suspect]
     Active Substance: POLYETHYLENE GLYCOL 3350
     Indication: Constipation
     Dosage: OTHER QUANTITY : 1 TABLESPOON(S);?FREQUENCY : DAILY;?
     Route: 048
     Dates: start: 20231221, end: 20240105
  2. FLUOXETINE [Concomitant]
     Active Substance: FLUOXETINE HYDROCHLORIDE
  3. chlonidine [Concomitant]

REACTIONS (5)
  - Anxiety [None]
  - Autophobia [None]
  - Morbid thoughts [None]
  - Abdominal pain upper [None]
  - Crying [None]

NARRATIVE: CASE EVENT DATE: 20231226
